FAERS Safety Report 7061854-6 (Version None)
Quarter: 2010Q4

REPORT INFORMATION
  Report Type: 
  Country: None (occurrence: None)
  Receive Date: 20101026
  Receipt Date: 20101018
  Transmission Date: 20110411
  Serious: Yes (Death, Hospitalization, Other)
  Sender: FDA-Public Use
  Company Number: IT-BAXTER-2010BH026131

PATIENT
  Age: 22 Year
  Sex: Male

DRUGS (3)
  1. CYCLOPHOSPHAMIDE [Suspect]
     Indication: PRODUCT USED FOR UNKNOWN INDICATION
     Route: 065
     Dates: start: 20070430, end: 20070501
  2. BUSULFAN [Suspect]
     Indication: PRODUCT USED FOR UNKNOWN INDICATION
     Route: 065
     Dates: start: 20070425, end: 20070428
  3. STARASID [Suspect]
     Indication: PRODUCT USED FOR UNKNOWN INDICATION
     Route: 065

REACTIONS (7)
  - ACUTE RESPIRATORY FAILURE [None]
  - ASTHMA [None]
  - BRONCHIECTASIS [None]
  - DYSPNOEA [None]
  - GRAFT VERSUS HOST DISEASE [None]
  - TACHYCARDIA [None]
  - WHEEZING [None]
